FAERS Safety Report 24254769 (Version 1)
Quarter: 2024Q3

REPORT INFORMATION
  Report Type: Spontaneous
  Country: KR (occurrence: KR)
  Receive Date: 20240827
  Receipt Date: 20240827
  Transmission Date: 20241016
  Serious: Yes (Hospitalization)
  Sender: ABBVIE
  Company Number: KR-ABBOTT-2024A-1386318

PATIENT

DRUGS (1)
  1. DEPAKOTE [Suspect]
     Active Substance: DIVALPROEX SODIUM
     Indication: Bipolar I disorder
     Dosage: DEPAKOTE ER TABLET 250MG
     Route: 048

REACTIONS (7)
  - Product physical issue [Unknown]
  - Condition aggravated [Unknown]
  - Drug level decreased [Unknown]
  - Product complaint [Unknown]
  - Bipolar I disorder [Unknown]
  - Drug ineffective [Unknown]
  - Poor quality product administered [Unknown]

NARRATIVE: CASE EVENT DATE: 20240101
